FAERS Safety Report 24778717 (Version 1)
Quarter: 2024Q4

REPORT INFORMATION
  Report Type: Spontaneous
  Country: US (occurrence: None)
  Receive Date: 20241226
  Receipt Date: 20241226
  Transmission Date: 20250115
  Serious: Yes (Other)
  Sender: Public
  Company Number: None

PATIENT
  Age: 71 Year
  Sex: Female
  Weight: 48.6 kg

DRUGS (2)
  1. IBANDRONATE SODIUM [Suspect]
     Active Substance: IBANDRONATE SODIUM
     Indication: Bone density abnormal
     Dosage: FREQUENCY : MONTHLY;?
     Route: 048
  2. RESTASIS [Concomitant]
     Active Substance: CYCLOSPORINE

REACTIONS (5)
  - Abdominal discomfort [None]
  - Dysphagia [None]
  - Bone disorder [None]
  - Tooth disorder [None]
  - Weight decreased [None]

NARRATIVE: CASE EVENT DATE: 20241101
